FAERS Safety Report 24552033 (Version 1)
Quarter: 2024Q4

REPORT INFORMATION
  Report Type: Spontaneous
  Country: JP (occurrence: JP)
  Receive Date: 20241026
  Receipt Date: 20241026
  Transmission Date: 20250114
  Serious: Yes (Hospitalization)
  Sender: PRINSTON PHARMACEUTICAL
  Company Number: JP-PRINSTON PHARMACEUTICAL INC.-2024PRN00396

PATIENT
  Age: 57 Year
  Sex: Female

DRUGS (8)
  1. QUETIAPINE [Suspect]
     Active Substance: QUETIAPINE
     Dosage: HALF TABLET OF 25 MG  1X/DAY
  2. TRAZODONE [Suspect]
     Active Substance: TRAZODONE HYDROCHLORIDE
     Dosage: 50 MG, 1X/DAY
  3. RISPERIDONE [Suspect]
     Active Substance: RISPERIDONE
     Dosage: 2 MG, 1X/DAY
  4. PAROXETINE [Suspect]
     Active Substance: PAROXETINE
     Dosage: 1X/DAY
  5. DIAZEPAM [Suspect]
     Active Substance: DIAZEPAM
  6. LEVOMEPROMAZINE [Suspect]
     Active Substance: LEVOMEPROMAZINE
  7. PALIPERIDONE [Suspect]
     Active Substance: PALIPERIDONE
  8. ZOLPIDEM [Suspect]
     Active Substance: ZOLPIDEM TARTRATE

REACTIONS (3)
  - Bezoar [Unknown]
  - Overdose [Unknown]
  - Toxicity to various agents [Unknown]
